FAERS Safety Report 10908389 (Version 3)
Quarter: 2015Q3

REPORT INFORMATION
  Report Type: Report from Study
  Country: CA (occurrence: CA)
  Receive Date: 20150312
  Receipt Date: 20150821
  Transmission Date: 20151125
  Serious: Yes (Other)
  Sender: FDA-Public Use
  Company Number: CA-ASTRAZENECA-2015SE10066

PATIENT
  Age: 17965 Day
  Sex: Female

DRUGS (14)
  1. TRIADERM [Concomitant]
     Dosage: 0.1% CR TOP DAILY
  2. OXYCODONE [Concomitant]
     Active Substance: OXYCODONE
  3. HYDROCHLORATHIAZIDE [Concomitant]
     Active Substance: HYDROCHLOROTHIAZIDE
  4. JAMP DICYCLOMINE [Concomitant]
  5. EMMO-CORT [Concomitant]
  6. CELEBREX [Concomitant]
     Active Substance: CELECOXIB
  7. SYNTHROID [Concomitant]
     Active Substance: LEVOTHYROXINE SODIUM
     Dosage: 0.2 DAILY
  8. GLAXAL [Concomitant]
  9. CAPRELSA [Suspect]
     Active Substance: VANDETANIB
     Indication: MEDULLARY THYROID CANCER
     Route: 048
     Dates: start: 20141114, end: 20150117
  10. CELEBREX [Concomitant]
     Active Substance: CELECOXIB
  11. OXYNEO [Concomitant]
     Active Substance: OXYCODONE
  12. VITAMIN B12 [Concomitant]
     Active Substance: CYANOCOBALAMIN
  13. CAPRELSA [Suspect]
     Active Substance: VANDETANIB
     Indication: MEDULLARY THYROID CANCER
     Route: 048
     Dates: start: 20150121
  14. PANTALOC [Concomitant]
     Dosage: DAILY PRN

REACTIONS (8)
  - Back pain [Recovered/Resolved]
  - Skin plaque [Recovered/Resolved]
  - Pruritus [Recovered/Resolved]
  - Drug dose omission [Recovered/Resolved]
  - Ovarian disorder [Unknown]
  - Post procedural complication [Recovered/Resolved]
  - Abdominal pain [Recovered/Resolved]
  - Rash [Recovered/Resolved]

NARRATIVE: CASE EVENT DATE: 20150114
